FAERS Safety Report 6195878-8 (Version None)
Quarter: 2009Q2

REPORT INFORMATION
  Report Type: 
  Country: None (occurrence: None)
  Receive Date: 20090520
  Receipt Date: 20090512
  Transmission Date: 20091009
  Serious: Yes (Death, Hospitalization)
  Sender: FDA-Public Use
  Company Number: BR-ROCHE-632605

PATIENT
  Age: 72 Year
  Sex: Male

DRUGS (3)
  1. DIAZEPAM [Suspect]
     Indication: DRUG USE FOR UNKNOWN INDICATION
     Route: 065
  2. DORMONID [Suspect]
     Indication: SEDATIVE THERAPY
     Dosage: 2 MG WAS ADMINISTERED ONCE
     Route: 042
     Dates: start: 20090507, end: 20090507
  3. MEPERIDINE HCL [Concomitant]
     Indication: SEDATIVE THERAPY
     Dates: start: 20090507, end: 20090507

REACTIONS (3)
  - CARDIO-RESPIRATORY ARREST [None]
  - PEPTIC ULCER [None]
  - PSYCHOMOTOR HYPERACTIVITY [None]
